FAERS Safety Report 21264670 (Version 1)
Quarter: 2022Q3

REPORT INFORMATION
  Report Type: Report from Study
  Country: IN (occurrence: IN)
  Receive Date: 20220829
  Receipt Date: 20220829
  Transmission Date: 20221027
  Serious: Yes (Hospitalization)
  Sender: FDA-Public Use
  Company Number: IN-MYLANLABS-2022M1088406

PATIENT
  Age: 31 Year
  Sex: Female

DRUGS (5)
  1. PRETOMANID [Suspect]
     Active Substance: PRETOMANID
     Indication: Pulmonary tuberculosis
     Dosage: 200 MILLIGRAM, QD FOR 26 WEEKS
     Route: 065
  2. BEDAQUILINE [Suspect]
     Active Substance: BEDAQUILINE
     Indication: Pulmonary tuberculosis
     Dosage: 400 MILLIGRAM, QD FOR 2 WEEKS
     Route: 048
  3. BEDAQUILINE [Suspect]
     Active Substance: BEDAQUILINE
     Dosage: 200 MILLIGRAM, QD FOR 24 WEEKS
     Route: 048
  4. LINEZOLID [Suspect]
     Active Substance: LINEZOLID
     Indication: Pulmonary tuberculosis
     Dosage: 600 MILLIGRAM, QD IN IP OF ARM 2 AND AND ARM 3
     Route: 065
  5. LINEZOLID [Suspect]
     Active Substance: LINEZOLID
     Dosage: 300 MILLIGRAM, QD IN CP OF ARM 2 AND ARM 3.
     Route: 065

REACTIONS (1)
  - Gastroenteritis [Recovered/Resolved]
